FAERS Safety Report 10907184 (Version 6)
Quarter: 2016Q2

REPORT INFORMATION
  Report Type: Report from Study
  Country: DE (occurrence: DE)
  Receive Date: 20150312
  Receipt Date: 20160405
  Transmission Date: 20160815
  Serious: Yes (Hospitalization, Other)
  Sender: FDA-Public Use
  Company Number: DE-ABBVIE-15K-062-1357248-00

PATIENT
  Age: 62 Year
  Sex: Female

DRUGS (8)
  1. HUMIRA [Suspect]
     Active Substance: ADALIMUMAB
     Route: 058
     Dates: start: 201502, end: 201508
  2. HUMIRA [Suspect]
     Active Substance: ADALIMUMAB
     Route: 058
     Dates: start: 201508
  3. PANTOPRAZOLE [Concomitant]
     Active Substance: PANTOPRAZOLE SODIUM
     Indication: PRODUCT USED FOR UNKNOWN INDICATION
  4. HUMIRA [Suspect]
     Active Substance: ADALIMUMAB
     Indication: PSORIATIC ARTHROPATHY
     Route: 058
     Dates: start: 201102, end: 201501
  5. CELEBREX [Concomitant]
     Active Substance: CELECOXIB
     Indication: RADICULOPATHY
  6. MTX [Concomitant]
     Active Substance: METHOTREXATE SODIUM
     Indication: RHEUMATOID ARTHRITIS
     Route: 058
  7. CELEBREX [Concomitant]
     Active Substance: CELECOXIB
     Indication: RHEUMATOID ARTHRITIS
     Dosage: 1-0-1
     Route: 048
  8. LYRICA [Concomitant]
     Active Substance: PREGABALIN
     Indication: RADICULOPATHY
     Dosage: 1-0-0

REACTIONS (7)
  - Joint instability [Recovering/Resolving]
  - Device fastener issue [Unknown]
  - Lumbar spinal stenosis [Recovering/Resolving]
  - Pain [Not Recovered/Not Resolved]
  - Impaired healing [Not Recovered/Not Resolved]
  - Spinal fracture [Unknown]
  - Radiculopathy [Recovering/Resolving]

NARRATIVE: CASE EVENT DATE: 201501
